FAERS Safety Report 13269780 (Version 1)
Quarter: 2017Q1

REPORT INFORMATION
  Report Type: Spontaneous
  Country: US (occurrence: US)
  Receive Date: 20170224
  Receipt Date: 20170224
  Transmission Date: 20170428
  Serious: No
  Sender: FDA-Public Use
  Company Number: US-BRACCO-013585

PATIENT
  Age: 84 Year
  Sex: Male

DRUGS (1)
  1. ISOVUE 370 [Suspect]
     Active Substance: IOPAMIDOL
     Indication: COMPUTERISED TOMOGRAM HEAD
     Dates: start: 20150902, end: 20150902

REACTIONS (3)
  - Dyspnoea [Unknown]
  - Rash [Unknown]
  - Movement disorder [Unknown]

NARRATIVE: CASE EVENT DATE: 201509
